FAERS Safety Report 8375975-9 (Version None)
Quarter: 2012Q2

REPORT INFORMATION
  Report Type: 
  Country: None (occurrence: None)
  Receive Date: 20120522
  Receipt Date: 20120518
  Transmission Date: 20120825
  Serious: Yes (Hospitalization)
  Sender: FDA-Public Use
  Company Number: KR-MILLENNIUM PHARMACEUTICALS, INC.-2012-02350

PATIENT

DRUGS (3)
  1. VELCADE [Suspect]
     Indication: MULTIPLE MYELOMA
     Dosage: 1.3 MG/M2, UNK
     Route: 042
     Dates: start: 20120315, end: 20120325
  2. PREDNISOLONE [Suspect]
     Indication: MULTIPLE MYELOMA
     Dosage: 60 MG/M2, UNK
     Route: 048
     Dates: start: 20120315, end: 20120318
  3. MELPHALAN [Suspect]
     Indication: MULTIPLE MYELOMA
     Dosage: 5.2 MG/M2, UNK
     Route: 048
     Dates: start: 20120315, end: 20120318

REACTIONS (1)
  - ENTEROCOLITIS INFECTIOUS [None]
